FAERS Safety Report 13225122 (Version 1)
Quarter: 2017Q1

REPORT INFORMATION
  Report Type: Spontaneous
  Country: US (occurrence: US)
  Receive Date: 20170213
  Receipt Date: 20170213
  Transmission Date: 20170428
  Serious: No
  Sender: FDA-Public Use
  Company Number: US-ALEMBIC PHARMACUETICALS LIMITED-2016SCAL000383

PATIENT

DRUGS (1)
  1. LAMOTRIGINE. [Suspect]
     Active Substance: LAMOTRIGINE
     Indication: PRODUCT USED FOR UNKNOWN INDICATION
     Dosage: UNK

REACTIONS (8)
  - Tremor [Unknown]
  - Arthralgia [Unknown]
  - Back pain [Unknown]
  - Joint stiffness [Unknown]
  - Trismus [Unknown]
  - Pollakiuria [Unknown]
  - Asthenopia [Unknown]
  - Insomnia [Unknown]
